FAERS Safety Report 25362157 (Version 1)
Quarter: 2025Q2

REPORT INFORMATION
  Report Type: Spontaneous
  Country: US (occurrence: None)
  Receive Date: 20250523
  Receipt Date: 20250523
  Transmission Date: 20250716
  Serious: Yes (Other)
  Sender: FDA-CTU
  Company Number: None

PATIENT
  Age: 25 Year
  Sex: Female
  Weight: 55.8 kg

DRUGS (1)
  1. CLARITIN [Suspect]
     Active Substance: LORATADINE
     Indication: Multiple allergies
     Route: 048
     Dates: start: 20250512, end: 20250516

REACTIONS (2)
  - Pruritus [None]
  - Pigmentation disorder [None]

NARRATIVE: CASE EVENT DATE: 20250513
